FAERS Safety Report 7597055-2 (Version None)
Quarter: 2011Q3

REPORT INFORMATION
  Report Type: 
  Country: None (occurrence: None)
  Receive Date: 20110708
  Receipt Date: 20110706
  Transmission Date: 20111222
  Serious: Yes (Other)
  Sender: FDA-Public Use
  Company Number: US-PFIZER INC-2011153138

PATIENT
  Sex: Male
  Weight: 77 kg

DRUGS (2)
  1. LYRICA [Suspect]
     Indication: HERPES ZOSTER
     Dosage: 50 MG, DAILY
     Route: 048
     Dates: start: 20110601, end: 20110706
  2. GABAPENTIN [Concomitant]
     Indication: HERPES ZOSTER
     Dosage: 300 MG, 3X/DAY
     Route: 048

REACTIONS (1)
  - EPISTAXIS [None]
